FAERS Safety Report 9759606 (Version 1)
Quarter: 2013Q4

REPORT INFORMATION
  Report Type: Spontaneous
  Country: US (occurrence: US)
  Receive Date: 20131216
  Receipt Date: 20131216
  Transmission Date: 20140711
  Serious: No
  Sender: FDA-Public Use
  Company Number: US-GILEAD-2010-0028225

PATIENT
  Age: 39 Year
  Sex: Female

DRUGS (10)
  1. LETAIRIS [Suspect]
     Indication: PULMONARY ARTERIAL HYPERTENSION
     Route: 048
     Dates: start: 20100311
  2. LETAIRIS [Suspect]
     Route: 048
     Dates: start: 20100205, end: 20100310
  3. LASIX [Concomitant]
  4. COREG [Concomitant]
  5. UNISOM [Concomitant]
  6. CEPHALEXIN [Concomitant]
  7. OSTEO BI-FLEX [Concomitant]
  8. NORCO [Concomitant]
  9. SOMA [Concomitant]
  10. KLOR-CON [Concomitant]

REACTIONS (3)
  - Dizziness [Recovered/Resolved]
  - Nausea [Recovered/Resolved]
  - Headache [Recovered/Resolved]
